FAERS Safety Report 7071829-9 (Version None)
Quarter: 2010Q4

REPORT INFORMATION
  Report Type: 
  Country: None (occurrence: None)
  Receive Date: 20101029
  Receipt Date: 20101014
  Transmission Date: 20110411
  Serious: Yes (Other)
  Sender: FDA-Public Use
  Company Number: PHHY2010RO70268

PATIENT
  Sex: Female

DRUGS (3)
  1. EXELON [Suspect]
     Indication: DEMENTIA ALZHEIMER'S TYPE
     Dosage: 4.6 MG, UNK
     Route: 062
  2. BUSPIRONE HCL [Concomitant]
     Dosage: 5 MG, BID
  3. IMOVANE [Concomitant]
     Dosage: 0.5 DF, QD

REACTIONS (1)
  - PSYCHOTIC DISORDER [None]
